FAERS Safety Report 6897396-8 (Version None)
Quarter: 2010Q3

REPORT INFORMATION
  Report Type: 
  Country: None (occurrence: None)
  Receive Date: 20100802
  Receipt Date: 20070514
  Transmission Date: 20110219
  Serious: No
  Sender: FDA-Public Use
  Company Number: US-PFIZER INC-2007039022

PATIENT
  Sex: Female
  Weight: 74.09 kg

DRUGS (10)
  1. LYRICA [Suspect]
     Indication: PAIN IN EXTREMITY
     Dates: start: 20070320, end: 20070502
  2. ESTRADIOL [Concomitant]
  3. LEVOTHYROXINE SODIUM [Concomitant]
  4. CYMBALTA [Concomitant]
  5. GEMFIBROZIL [Concomitant]
  6. AMBIEN [Concomitant]
  7. CALCIUM [Concomitant]
  8. ASCORBIC ACID [Concomitant]
  9. CHONDROITIN/GLUCOSAMINE [Concomitant]
  10. IBANDRONATE SODIUM [Concomitant]

REACTIONS (4)
  - JOINT SWELLING [None]
  - OEDEMA PERIPHERAL [None]
  - PAIN IN EXTREMITY [None]
  - WEIGHT INCREASED [None]
